FAERS Safety Report 5102395-2 (Version None)
Quarter: 2006Q3

REPORT INFORMATION
  Report Type: 
  Country: None (occurrence: None)
  Receive Date: 20060907
  Receipt Date: 20060822
  Transmission Date: 20061208
  Serious: Yes (Hospitalization)
  Sender: FDA-Public Use
  Company Number: US200608004646

PATIENT
  Age: 46 Year
  Sex: Female
  Weight: 112.5 kg

DRUGS (5)
  1. HUMALOG [Suspect]
     Indication: BLOOD GLUCOSE ABNORMAL
     Dosage: AS NEEDED
     Dates: start: 20051001
  2. GLUCOPHAGE [Concomitant]
  3. RITUXAN [Concomitant]
  4. STEROID ANTIBACTERIALS [Concomitant]
  5. METHOTREXATE [Concomitant]

REACTIONS (4)
  - ASTHMA [None]
  - NEUTROPENIA [None]
  - PNEUMONIA [None]
  - WEIGHT LOSS DIET [None]
